FAERS Safety Report 11794608 (Version 1)
Quarter: 2015Q4

REPORT INFORMATION
  Report Type: Spontaneous
  Country: US (occurrence: US)
  Receive Date: 20151202
  Receipt Date: 20151202
  Transmission Date: 20160305
  Serious: No
  Sender: FDA-Public Use
  Company Number: GXBR2015US000511

PATIENT
  Age: 24 Year
  Sex: Male

DRUGS (3)
  1. BUPROPION HCI TABLETS EXTENDED-RELEASE [Suspect]
     Active Substance: BUPROPION HYDROCHLORIDE
     Indication: ANXIETY
     Dosage: 150 MG, QD
     Route: 048
  2. LEVOCETIRIZINE [Concomitant]
     Active Substance: LEVOCETIRIZINE
     Indication: HYPERSENSITIVITY
     Dosage: 5 MG, QD
     Dates: start: 2014
  3. HUMIRA [Concomitant]
     Active Substance: ADALIMUMAB
     Indication: CROHN^S DISEASE
     Dosage: 40 MG, BIW
     Route: 058

REACTIONS (1)
  - Erectile dysfunction [Recovering/Resolving]

NARRATIVE: CASE EVENT DATE: 20150111
